FAERS Safety Report 4281800-8 (Version None)
Quarter: 2004Q1

REPORT INFORMATION
  Report Type: 
  Country: None (occurrence: None)
  Receive Date: 20040129
  Receipt Date: 20040129
  Transmission Date: 20041129
  Serious: Yes (Hospitalization)
  Sender: FDA-Public Use
  Company Number: None

PATIENT
  Age: 61 Year
  Sex: Male
  Weight: 93.3 kg

DRUGS (7)
  1. MESNA [Suspect]
     Indication: SARCOMA
     Dosage: MESNA 880 INTRAVENOUS
     Route: 042
     Dates: start: 20031230, end: 20031231
  2. IFOS [Suspect]
     Dosage: IFOS 4400 INTRAVENOUS
     Route: 042
     Dates: start: 20031230, end: 20031231
  3. LEKINE [Concomitant]
  4. OXYCONTIN [Concomitant]
  5. REGLAN [Concomitant]
  6. DXM [Concomitant]
  7. NEXIUM [Concomitant]

REACTIONS (6)
  - ASTHENIA [None]
  - CHEST PAIN [None]
  - DEHYDRATION [None]
  - DIZZINESS [None]
  - NAUSEA [None]
  - VOMITING [None]
